FAERS Safety Report 8970432 (Version 1)
Quarter: 2012Q4

REPORT INFORMATION
  Report Type: 
  Country: SE (occurrence: SE)
  Receive Date: 20121217
  Receipt Date: 20121217
  Transmission Date: 20130627
  Serious: Yes (Hospitalization)
  Sender: FDA-Public Use
  Company Number: SE-MUTUAL PHARMACEUTICAL COMPANY, INC.-IBPF20120009

PATIENT
  Age: 92 Year
  Sex: Female

DRUGS (14)
  1. IBUPROFEN [Suspect]
     Indication: CHRONIC SKIN ULCER
     Route: 048
     Dates: start: 20120913, end: 20120920
  2. NABUMETONE [Suspect]
     Indication: CHRONIC SKIN ULCER
     Route: 048
     Dates: start: 20120921, end: 20121002
  3. BRICANYL (TERBUTALINE SULFATE) (POWDER AND SOLVENT, INFUSION SOLUTION) [Concomitant]
     Indication: DRUG USE FOR UNKNOWN INDICATION
  4. KALCIPOS-D (LEKOVIT CA) (CHEWABLE TABLET) [Concomitant]
     Indication: DRUG USE FOR UNKNOWN INDICATION
  5. FENURIL (FENURIL) [Concomitant]
     Indication: DRUG USE FOR UNKNOWN INDICATION
  6. MOXALOLE (MACROGOL) (POWDER AND SOLVENT FOR SOLUTION FOR INFUSION) [Concomitant]
     Indication: DRUG USE FOR UNKNOWN INDICATION
  7. FOLACIN (FOLACIN) (TABLETS) [Concomitant]
     Indication: DRUG USE FOR UNKNOWN INDICATION
  8. PANODIL (PARACETAMOL) (ENTERIC-COATED TABLET) [Concomitant]
     Indication: DRUG USE FOR UNKNOWN INDICATION
  9. BEHEPAN (CYANOCOBALAMIN) (ENTERIC-COATED TABLET) [Concomitant]
     Indication: DRUG USE FOR UNKNOWN INDICATION
  10. XYLOPROCT (XYLOPROCT) [Concomitant]
     Indication: DRUG USE FOR UNKNOWN INDICATION
  11. TROMBYL (ACETYLSALICYLIC ACID) (TABLETS) [Concomitant]
     Indication: DRUG USE FOR UNKNOWN INDICATION
  12. LAKTULOS (LACTULOSE) [Concomitant]
     Indication: DRUG USE FOR UNKNOWN INDICATION
  13. ALLOPURINOL (ALLOPURINOL) [Concomitant]
     Indication: DRUG USE FOR UNKNOWN INDICATION
  14. NOVOMIX (INSULIN ASPART) (30, SUSPENSION) [Concomitant]
     Indication: DRUG USE FOR UNKNOWN INDICATION

REACTIONS (8)
  - Fatigue [Not Recovered/Not Resolved]
  - Dyspnoea [Not Recovered/Not Resolved]
  - Blood creatinine increased [Not Recovered/Not Resolved]
  - Pruritus [Not Recovered/Not Resolved]
  - Oedema [Not Recovered/Not Resolved]
  - Cardiac failure [Not Recovered/Not Resolved]
  - Renal failure acute [Not Recovered/Not Resolved]
  - Oedema [None]
